FAERS Safety Report 23291305 (Version 1)
Quarter: 2023Q4

REPORT INFORMATION
  Report Type: Report from Study
  Country: JP (occurrence: JP)
  Receive Date: 20231213
  Receipt Date: 20231213
  Transmission Date: 20240110
  Serious: Yes (Hospitalization, Other)
  Sender: FDA-Public Use
  Company Number: JP-TAKEDA-2018TJP018201

PATIENT
  Age: 84 Year
  Sex: Male

DRUGS (8)
  1. LEUPROLIDE ACETATE [Suspect]
     Active Substance: LEUPROLIDE ACETATE
     Indication: Bulbospinal muscular atrophy congenital
     Dosage: 11.25 MG, Q3MONTHS
     Route: 058
     Dates: start: 20171010, end: 20171010
  2. NIFEDIPINE [Concomitant]
     Active Substance: NIFEDIPINE
     Indication: Hypertension
     Dosage: 20 MG, UNK
     Route: 048
  3. GLIMEPIRIDE A [Concomitant]
     Indication: Product used for unknown indication
     Dosage: 1 MG, UNK
     Route: 048
     Dates: end: 201802
  4. VOGLIBOSE SW [Concomitant]
     Indication: Product used for unknown indication
     Dosage: 0.9 MG, UNK
     Route: 048
     Dates: end: 201802
  5. TRESIBA [Concomitant]
     Active Substance: INSULIN DEGLUDEC
     Indication: Product used for unknown indication
     Dosage: 8 IU, UNK
     Route: 050
     Dates: start: 201802
  6. INSULIN ASPART [Concomitant]
     Active Substance: INSULIN ASPART
     Indication: Product used for unknown indication
     Dosage: 2 IU, UNK
     Route: 050
     Dates: start: 201802
  7. NOVORAPID [Concomitant]
     Active Substance: INSULIN ASPART
     Indication: Product used for unknown indication
     Dosage: 2 IU, UNK
     Route: 050
     Dates: start: 201802
  8. INSULIN NOS [Concomitant]
     Active Substance: INSULIN NOS
     Indication: Product used for unknown indication
     Dosage: 8 IU, UNK
     Route: 050
     Dates: start: 201802

REACTIONS (4)
  - Diabetes mellitus [Recovering/Resolving]
  - Muscular weakness [Recovering/Resolving]
  - Myalgia [Recovering/Resolving]
  - Pneumonia [Recovered/Resolved]

NARRATIVE: CASE EVENT DATE: 20171101
